FAERS Safety Report 8835438 (Version 2)
Quarter: 2013Q1

REPORT INFORMATION
  Report Type: Spontaneous
  Country: FR (occurrence: FR)
  Receive Date: 20121011
  Receipt Date: 20130212
  Transmission Date: 20140127
  Serious: Yes (Other)
  Sender: FDA-Public Use
  Company Number: FR-ROCHE-1143229

PATIENT
  Sex: Female

DRUGS (8)
  1. LUCENTIS [Suspect]
     Indication: PRODUCT USED FOR UNKNOWN INDICATION
     Route: 050
     Dates: start: 20120403
  2. LUCENTIS [Suspect]
     Route: 050
     Dates: start: 201209
  3. INEGY [Concomitant]
     Indication: HYPERCHOLESTEROLAEMIA
     Route: 048
  4. TRIATEC [Concomitant]
     Indication: HYPERTENSION
     Route: 048
  5. BILASKA [Concomitant]
     Indication: HYPERSENSITIVITY
     Route: 048
  6. SYMBICORT [Concomitant]
     Indication: HYPERSENSITIVITY
  7. DEROXAT [Concomitant]
     Route: 048
  8. BETADINE [Concomitant]
     Route: 061
     Dates: start: 20120403

REACTIONS (1)
  - Aphasia [Recovered/Resolved]
